FAERS Safety Report 23381497 (Version 2)
Quarter: 2024Q1

REPORT INFORMATION
  Report Type: Spontaneous
  Country: IN (occurrence: IN)
  Receive Date: 20240109
  Receipt Date: 20240119
  Transmission Date: 20240409
  Serious: Yes (Other)
  Sender: FDA-Public Use
  Company Number: IN-MLMSERVICE-20231229-4746324-1

PATIENT
  Age: 50 Year
  Sex: Male

DRUGS (18)
  1. PLERIXAFOR [Suspect]
     Active Substance: PLERIXAFOR
     Indication: Diffuse large B-cell lymphoma stage IV
     Dosage: 5.1X10*6/KG ON DAY 0.
     Route: 041
     Dates: start: 2021
  2. PLERIXAFOR [Suspect]
     Active Substance: PLERIXAFOR
     Indication: Metastases to liver
  3. PLERIXAFOR [Suspect]
     Active Substance: PLERIXAFOR
     Indication: Metastases to lymph nodes
  4. MELPHALAN [Suspect]
     Active Substance: MELPHALAN
     Indication: Diffuse large B-cell lymphoma stage IV
     Dosage: 120 MG/M2 (ON DAY 1)
     Dates: start: 2021
  5. MELPHALAN [Suspect]
     Active Substance: MELPHALAN
     Indication: Metastases to lymph nodes
  6. MELPHALAN [Suspect]
     Active Substance: MELPHALAN
     Indication: Metastases to liver
  7. CYTARABINE [Suspect]
     Active Substance: CYTARABINE
     Indication: Metastases to lymph nodes
     Dosage: 200 MG/M2 (ON DAY-5 TO -2)
     Dates: start: 2021
  8. CYTARABINE [Suspect]
     Active Substance: CYTARABINE
     Indication: Metastases to liver
  9. CYTARABINE [Suspect]
     Active Substance: CYTARABINE
     Indication: Diffuse large B-cell lymphoma stage IV
  10. ETOPOSIDE [Suspect]
     Active Substance: ETOPOSIDE
     Indication: Metastases to lymph nodes
     Dosage: 200 MG/M2 ON DAY-5 TO -2
     Dates: start: 2021
  11. ETOPOSIDE [Suspect]
     Active Substance: ETOPOSIDE
     Indication: Metastases to liver
  12. ETOPOSIDE [Suspect]
     Active Substance: ETOPOSIDE
     Indication: Diffuse large B-cell lymphoma stage IV
  13. CARMUSTINE [Suspect]
     Active Substance: CARMUSTINE
     Indication: Diffuse large B-cell lymphoma stage IV
     Dosage: 300 MG/M2 (DAY 6)
     Dates: start: 2021
  14. CARMUSTINE [Suspect]
     Active Substance: CARMUSTINE
     Indication: Metastases to liver
  15. CARMUSTINE [Suspect]
     Active Substance: CARMUSTINE
     Indication: Metastases to lymph nodes
  16. GRANULOCYTE COLONY-STIMULATING FACTOR NOS [Concomitant]
     Active Substance: GRANULOCYTE COLONY-STIMULATING FACTOR NOS
     Indication: Diffuse large B-cell lymphoma stage IV
     Dosage: UNK
     Route: 041
  17. GRANULOCYTE COLONY-STIMULATING FACTOR NOS [Concomitant]
     Active Substance: GRANULOCYTE COLONY-STIMULATING FACTOR NOS
     Indication: Metastases to liver
  18. GRANULOCYTE COLONY-STIMULATING FACTOR NOS [Concomitant]
     Active Substance: GRANULOCYTE COLONY-STIMULATING FACTOR NOS
     Indication: Metastases to lymph nodes

REACTIONS (3)
  - Stomatitis [Unknown]
  - Gastrointestinal inflammation [Unknown]
  - Septic shock [Unknown]

NARRATIVE: CASE EVENT DATE: 20210101
